FAERS Safety Report 13961821 (Version 1)
Quarter: 2017Q3

REPORT INFORMATION
  Report Type: Spontaneous
  Country: US (occurrence: US)
  Receive Date: 20170912
  Receipt Date: 20170912
  Transmission Date: 20171128
  Serious: No
  Sender: FDA-Public Use
  Company Number: US-BAYER-2017-175137

PATIENT
  Age: 67 Year
  Sex: Female
  Weight: 67.98 kg

DRUGS (1)
  1. CLARITIN [Suspect]
     Active Substance: LORATADINE
     Indication: SINUSITIS
     Dosage: 0.5 DF, QD
     Route: 048

REACTIONS (3)
  - Inappropriate prescribing [Unknown]
  - Off label use [Unknown]
  - Circumstance or information capable of leading to medication error [Unknown]
